FAERS Safety Report 11322485 (Version 2)
Quarter: 2015Q3

REPORT INFORMATION
  Report Type: Report from Study
  Country: US (occurrence: US)
  Receive Date: 20150730
  Receipt Date: 20150901
  Transmission Date: 20151125
  Serious: Yes (Other)
  Sender: FDA-Public Use
  Company Number: US-AMGEN-USASP2015073534

PATIENT
  Age: 64 Year
  Sex: Female

DRUGS (2)
  1. ENBREL [Suspect]
     Active Substance: ETANERCEPT
     Indication: BEHCET^S SYNDROME
     Dosage: 50 MG, QWK
     Route: 065
     Dates: end: 201310
  2. PREDNISONE. [Concomitant]
     Active Substance: PREDNISONE
     Dosage: UNK

REACTIONS (6)
  - Pulmonary embolism [Unknown]
  - Mouth ulceration [Unknown]
  - Breast cancer [Recovered/Resolved]
  - Off label use [Unknown]
  - Visual acuity reduced [Unknown]
  - Skin lesion [Unknown]

NARRATIVE: CASE EVENT DATE: 201310
